FAERS Safety Report 13784498 (Version 1)
Quarter: 2017Q3

REPORT INFORMATION
  Report Type: Spontaneous
  Country: US (occurrence: US)
  Receive Date: 20170724
  Receipt Date: 20170724
  Transmission Date: 20171127
  Serious: No
  Sender: FDA-Public Use
  Company Number: None

PATIENT
  Age: 58 Year
  Sex: Male

DRUGS (1)
  1. ZEPATIER [Suspect]
     Active Substance: ELBASVIR\GRAZOPREVIR
     Dosage: 1 TABLET QD ORAL
     Route: 048
     Dates: start: 20170603

REACTIONS (2)
  - Cerebrovascular accident [None]
  - Abdominal pain upper [None]

NARRATIVE: CASE EVENT DATE: 20170710
